FAERS Safety Report 8962675 (Version 2)
Quarter: 2013Q1

REPORT INFORMATION
  Report Type: Spontaneous
  Country: US (occurrence: US)
  Receive Date: 20121213
  Receipt Date: 20130215
  Transmission Date: 20140127
  Serious: Yes (Hospitalization)
  Sender: FDA-Public Use
  Company Number: US-VERTEX PHARMACEUTICALS INC.-2012-026043

PATIENT
  Age: 55 Year
  Sex: Male

DRUGS (9)
  1. INCIVEK [Suspect]
     Indication: HEPATITIS C
     Dosage: UNK
     Route: 048
     Dates: start: 20120925, end: 20121209
  2. PEGINTERFERON ALFA-2A [Suspect]
     Indication: HEPATITIS C
     Dosage: UNK
     Dates: start: 20120925, end: 20121209
  3. PEGINTERFERON ALFA-2A [Suspect]
     Dosage: UNK
     Dates: start: 20121212
  4. RIBAVIRIN [Suspect]
     Indication: HEPATITIS C
     Dosage: 1000 MG, QD
     Dates: start: 20120925
  5. RIBAVIRIN [Suspect]
     Dosage: 600 MG, QD
     Dates: start: 20121109, end: 20121209
  6. RIBAVIRIN [Suspect]
     Dosage: UNK
     Dates: start: 20121212
  7. OXYCODONE [Concomitant]
     Dosage: UNK, PRN
  8. LISINOPRIL/HCTZ [Concomitant]
  9. DILTIAZEM [Concomitant]

REACTIONS (1)
  - Deep vein thrombosis [Not Recovered/Not Resolved]
